FAERS Safety Report 17449409 (Version 1)
Quarter: 2020Q1

REPORT INFORMATION
  Report Type: Spontaneous
  Country: US (occurrence: US)
  Receive Date: 20200224
  Receipt Date: 20200224
  Transmission Date: 20200409
  Serious: No
  Sender: FDA-Public Use
  Company Number: US-ALLERGAN-1923096US

PATIENT
  Age: 81 Year
  Sex: Female

DRUGS (3)
  1. OXYTROL FOR WOMEN [Suspect]
     Active Substance: OXYBUTYNIN
     Indication: HYPERTONIC BLADDER
     Dosage: 1 PATCH EVERY 4 DAYS
     Route: 062
     Dates: start: 201905
  2. VITAMIN D [Concomitant]
     Active Substance: VITAMIN D NOS
  3. UNSPECIFIED MEDICATION FOR HIGH BLOOD PRESSURE [Concomitant]
     Indication: HYPERTENSION

REACTIONS (3)
  - Application site erythema [Recovered/Resolved]
  - Product adhesion issue [Unknown]
  - Application site pain [Recovered/Resolved]
